FAERS Safety Report 8263835-3 (Version None)
Quarter: 2012Q2

REPORT INFORMATION
  Report Type: 
  Country: None (occurrence: None)
  Receive Date: 20120405
  Receipt Date: 20120403
  Transmission Date: 20120825
  Serious: Yes (Other)
  Sender: FDA-Public Use
  Company Number: GB-MERCK-1204GBR00014

PATIENT
  Age: 60 Year
  Sex: Female
  Weight: 65 kg

DRUGS (4)
  1. COZAAR [Suspect]
     Route: 048
     Dates: start: 20120214
  2. SERTRALINE HYDROCHLORIDE [Concomitant]
     Route: 065
     Dates: start: 20120306
  3. LEVOTHYROXINE SODIUM [Concomitant]
     Route: 065
     Dates: start: 20120306
  4. MEBEVERINE HYDROCHLORIDE [Concomitant]
     Route: 065
     Dates: start: 20120229

REACTIONS (2)
  - DRUG ERUPTION [None]
  - RASH PRURITIC [None]
